FAERS Safety Report 8535307-X (Version None)
Quarter: 2012Q3

REPORT INFORMATION
  Report Type: 
  Country: None (occurrence: None)
  Receive Date: 20120725
  Receipt Date: 20120716
  Transmission Date: 20120928
  Serious: Yes (Hospitalization, Other)
  Sender: FDA-Public Use
  Company Number: US-BIOGENIDEC-2011BI031492

PATIENT
  Age: 62 Year
  Sex: Female
  Weight: 64 kg

DRUGS (14)
  1. ESCITALOPRAM [Concomitant]
  2. DALFAMPRIDINE [Concomitant]
  3. TYSABRI [Suspect]
     Route: 042
     Dates: start: 20061013, end: 20110818
  4. METHYLPHENIDATE [Concomitant]
  5. IBUPROFEN [Concomitant]
  6. TIZANIDINE HCL [Concomitant]
  7. TYSABRI [Suspect]
     Indication: MULTIPLE SCLEROSIS
     Route: 042
  8. NAPROXEN SODIUM [Concomitant]
  9. HYDROCODONE [Concomitant]
  10. ACETAMINOPHEN [Concomitant]
  11. CYNACOBALAMIN [Concomitant]
  12. SIMVASTATIN [Concomitant]
  13. VITAMIN D [Concomitant]
  14. ATENOLOL [Concomitant]

REACTIONS (2)
  - PROGRESSIVE MULTIFOCAL LEUKOENCEPHALOPATHY [None]
  - IMMUNE RECONSTITUTION SYNDROME [None]
